FAERS Safety Report 8405779-X (Version None)
Quarter: 2012Q2

REPORT INFORMATION
  Report Type: 
  Country: None (occurrence: None)
  Receive Date: 20120529
  Receipt Date: 20060829
  Transmission Date: 20120825
  Serious: Yes (Hospitalization, Other)
  Sender: FDA-Public Use
  Company Number: 02100-JPN-06-0368

PATIENT
  Age: 85 Year
  Sex: Female
  Weight: 43 kg

DRUGS (11)
  1. GASMOTIN (MOSAPRIDE CITRATE) [Concomitant]
  2. SELENICA-R (VALPROATE SODIUM) [Concomitant]
  3. PLETAL [Suspect]
     Indication: CEREBRAL INFARCTION
     Dosage: 100 MG, BID, ORAL 100 MG, QD, ORAL
     Route: 048
     Dates: start: 20040812, end: 20051029
  4. PLETAL [Suspect]
     Indication: CEREBRAL INFARCTION
     Dosage: 100 MG, BID, ORAL 100 MG, QD, ORAL
     Route: 048
     Dates: start: 20051105, end: 20060829
  5. GLYBURIDE [Concomitant]
  6. PERINDOPRIL ERBUMINE [Concomitant]
  7. TRICHLORMETHIAZIDE [Concomitant]
  8. TEGRETOL [Concomitant]
  9. KETAS (IBUDILAST) [Concomitant]
  10. LIPITOR [Concomitant]
  11. DOXAZOSIN MESYLATE [Concomitant]

REACTIONS (7)
  - CONVULSION [None]
  - TUMOUR HAEMORRHAGE [None]
  - HEPATIC STEATOSIS [None]
  - CEREBRAL HAEMORRHAGE [None]
  - BRAIN CANCER METASTATIC [None]
  - LUNG NEOPLASM MALIGNANT [None]
  - HAEMORRHAGIC INFARCTION [None]
